FAERS Safety Report 6625053-1 (Version None)
Quarter: 2010Q1

REPORT INFORMATION
  Report Type: 
  Country: None (occurrence: None)
  Receive Date: 20100310
  Receipt Date: 20090921
  Transmission Date: 20100710
  Serious: No
  Sender: FDA-Public Use
  Company Number: US-BIOGENIDEC-2009BI030760

PATIENT
  Age: 55 Year
  Sex: Female

DRUGS (2)
  1. AVONEX [Suspect]
     Indication: MULTIPLE SCLEROSIS
     Route: 030
     Dates: start: 20080923, end: 20090527
  2. AVONEX [Suspect]
     Route: 030
     Dates: start: 20090825

REACTIONS (4)
  - ABDOMINAL DISCOMFORT [None]
  - FRUSTRATION [None]
  - HYPOAESTHESIA [None]
  - INFLUENZA [None]
